FAERS Safety Report 19593317 (Version 1)
Quarter: 2021Q3

REPORT INFORMATION
  Report Type: Spontaneous
  Country: CA (occurrence: CA)
  Receive Date: 20210722
  Receipt Date: 20210722
  Transmission Date: 20211014
  Serious: Yes (Life-Threatening)
  Sender: FDA-Public Use
  Company Number: CA-EISAI MEDICAL RESEARCH-EC-2021-096474

PATIENT
  Age: 69 Year
  Sex: Female
  Weight: 47 kg

DRUGS (1)
  1. LENVIMA [Suspect]
     Active Substance: LENVATINIB
     Indication: THYROID CANCER STAGE IV
     Route: 048

REACTIONS (5)
  - Cardiogenic shock [Unknown]
  - Mitral valve incompetence [Unknown]
  - Systolic anterior motion of mitral valve [Unknown]
  - Left ventricular dysfunction [Unknown]
  - Stress cardiomyopathy [Unknown]
